FAERS Safety Report 7371227-4 (Version None)
Quarter: 2011Q1

REPORT INFORMATION
  Report Type: 
  Country: None (occurrence: None)
  Receive Date: 20110324
  Receipt Date: 20101019
  Transmission Date: 20110831
  Serious: Yes (Other)
  Sender: FDA-Public Use
  Company Number: US-BAYER-201029961NA

PATIENT
  Sex: Female
  Weight: 92.517 kg

DRUGS (3)
  1. YAZ [Suspect]
     Indication: CONTRACEPTION
     Dosage: UNK UNK, QD
     Route: 048
     Dates: start: 20070401, end: 20090901
  2. YAZ [Suspect]
     Dosage: UNK
     Dates: start: 20090410, end: 20090912
  3. SYNTHROID [Concomitant]

REACTIONS (1)
  - DEEP VEIN THROMBOSIS [None]
